FAERS Safety Report 5494648-3 (Version None)
Quarter: 2007Q4

REPORT INFORMATION
  Report Type: 
  Country: None (occurrence: None)
  Receive Date: 20071023
  Receipt Date: 20071023
  Transmission Date: 20080405
  Serious: Yes (Hospitalization)
  Sender: FDA-Public Use
  Company Number: None

PATIENT
  Age: 63 Year
  Sex: Male
  Weight: 100.5 kg

DRUGS (2)
  1. GM-CSF   500MCG   BERLIX [Suspect]
     Indication: PROSTATE CANCER
     Dosage: 250 MCG  THREE TIMES A WEEK  SQ
     Route: 058
     Dates: start: 20070815, end: 20071019
  2. NEXIUM [Concomitant]

REACTIONS (2)
  - OEDEMA PERIPHERAL [None]
  - THROMBOSIS [None]
